FAERS Safety Report 5568197-8 (Version None)
Quarter: 2007Q4

REPORT INFORMATION
  Report Type: 
  Country: None (occurrence: None)
  Receive Date: 20071220
  Receipt Date: 20071213
  Transmission Date: 20080405
  Serious: Yes (Hospitalization, Other)
  Sender: FDA-Public Use
  Company Number: US-BAYER-200714157BCC

PATIENT
  Sex: Female
  Weight: 107 kg

DRUGS (1)
  1. ALEVE [Suspect]
     Indication: HEADACHE
     Route: 048

REACTIONS (1)
  - UNRESPONSIVE TO STIMULI [None]
